FAERS Safety Report 7213376-7 (Version None)
Quarter: 2011Q1

REPORT INFORMATION
  Report Type: 
  Country: None (occurrence: None)
  Receive Date: 20110106
  Receipt Date: 20101230
  Transmission Date: 20110831
  Serious: Yes (Hospitalization)
  Sender: FDA-Public Use
  Company Number: US-US-EMD SERONO, INC.-7034578

PATIENT
  Sex: Female

DRUGS (2)
  1. REBIF [Suspect]
     Route: 058
     Dates: start: 20100101
  2. REBIF [Suspect]
     Indication: MULTIPLE SCLEROSIS
     Route: 058
     Dates: start: 20100315, end: 20100101

REACTIONS (6)
  - PYELONEPHRITIS [None]
  - NEPHROLITHIASIS [None]
  - ARTHRALGIA [None]
  - URINARY INCONTINENCE [None]
  - MALAISE [None]
  - KIDNEY FIBROSIS [None]
